FAERS Safety Report 10234800 (Version 2)
Quarter: 2014Q3

REPORT INFORMATION
  Report Type: Spontaneous
  Country: KR (occurrence: KR)
  Receive Date: 20140613
  Receipt Date: 20140703
  Transmission Date: 20150326
  Serious: Yes (Other)
  Sender: FDA-Public Use
  Company Number: KR-ASTRAZENECA-2014SE39599

PATIENT
  Sex: Male

DRUGS (2)
  1. ALMAGEL-F SUSPENSION [Concomitant]
  2. CRESTOR [Suspect]
     Active Substance: ROSUVASTATIN CALCIUM
     Route: 048
     Dates: start: 201105, end: 20140605

REACTIONS (4)
  - Arthralgia [Unknown]
  - Myalgia [Unknown]
  - Apnoea [Unknown]
  - Sexual dysfunction [Unknown]
